FAERS Safety Report 4509463-4 (Version None)
Quarter: 2004Q4

REPORT INFORMATION
  Report Type: 
  Country: None (occurrence: None)
  Receive Date: 20041119
  Receipt Date: 20041102
  Transmission Date: 20050328
  Serious: Yes (Hospitalization)
  Sender: FDA-Public Use
  Company Number: SU-2004-002814

PATIENT
  Sex: Female

DRUGS (2)
  1. BENICAR [Suspect]
     Indication: HYPERTENSION
     Dosage: PO
     Route: 048
  2. COREG [Suspect]

REACTIONS (1)
  - BLOOD SODIUM DECREASED [None]
